FAERS Safety Report 10229726 (Version 1)
Quarter: 2014Q2

REPORT INFORMATION
  Report Type: Report from Study
  Country: ZA (occurrence: ZA)
  Receive Date: 20140611
  Receipt Date: 20140611
  Transmission Date: 20141212
  Serious: Yes (Hospitalization)
  Sender: FDA-Public Use
  Company Number: PHHY2014ZA070722

PATIENT
  Age: 58 Year
  Sex: Female

DRUGS (4)
  1. ACLASTA [Suspect]
     Dosage: UNK
     Route: 042
     Dates: start: 201006
  2. ACLASTA [Suspect]
     Dosage: UNK
     Route: 042
     Dates: start: 2012
  3. ACLASTA [Suspect]
     Dosage: UNK
     Route: 042
     Dates: start: 2013
  4. WARFARIN [Concomitant]
     Dosage: UNK

REACTIONS (3)
  - Femur fracture [Unknown]
  - Limb deformity [Unknown]
  - Depression [Unknown]
